FAERS Safety Report 22525248 (Version 2)
Quarter: 2023Q4

REPORT INFORMATION
  Report Type: Spontaneous
  Country: US (occurrence: US)
  Receive Date: 20230606
  Receipt Date: 20231031
  Transmission Date: 20240110
  Serious: Yes (Other)
  Sender: FDA-Public Use
  Company Number: US-ASTELLAS-2023US016773

PATIENT
  Sex: Male

DRUGS (2)
  1. XTANDI [Suspect]
     Active Substance: ENZALUTAMIDE
     Indication: Prostate cancer
     Dosage: UNK UNK, UNKNOWN FREQ.
     Route: 065
  2. ELIGARD [Suspect]
     Active Substance: LEUPROLIDE ACETATE
     Indication: Prostate cancer
     Dosage: UNK UNK, UNKNOWN FREQ.
     Route: 065
     Dates: end: 202012

REACTIONS (9)
  - Malignant neoplasm progression [Unknown]
  - Mobility decreased [Recovering/Resolving]
  - Respiratory fatigue [Recovering/Resolving]
  - Muscle fatigue [Recovering/Resolving]
  - Mental fatigue [Recovering/Resolving]
  - Mucosal dryness [Recovering/Resolving]
  - Tendon sheath disorder [Recovering/Resolving]
  - Tendonitis [Recovering/Resolving]
  - Gait inability [Recovering/Resolving]
